FAERS Safety Report 5678987-9 (Version None)
Quarter: 2008Q1

REPORT INFORMATION
  Report Type: 
  Country: None (occurrence: None)
  Receive Date: 20080325
  Receipt Date: 20080312
  Transmission Date: 20080703
  Serious: Yes (Hospitalization, Congenital Anomaly)
  Sender: FDA-Public Use
  Company Number: A0685060A

PATIENT
  Sex: Male
  Weight: 3.4 kg

DRUGS (8)
  1. PAXIL [Suspect]
     Indication: DEPRESSION
     Dosage: 20MG PER DAY
     Dates: start: 20000101, end: 20020101
  2. ALBUTEROL [Concomitant]
     Indication: BRONCHITIS
     Dates: start: 19940101
  3. XANAX [Concomitant]
     Indication: ANXIETY
     Dates: start: 19970101
  4. PREDNISOLONE [Concomitant]
     Indication: BRONCHITIS
     Dates: start: 19980101, end: 20040101
  5. VITAMIN TAB [Concomitant]
     Indication: PREGNANCY
     Dates: start: 19940101, end: 20010101
  6. TYLENOL (CAPLET) [Concomitant]
  7. ANTIBIOTICS [Concomitant]
  8. PREDNISONE TAB [Concomitant]

REACTIONS (31)
  - ALLERGIC COLITIS [None]
  - ANGER [None]
  - ASTHMA [None]
  - ATTENTION DEFICIT/HYPERACTIVITY DISORDER [None]
  - AUTISM [None]
  - AUTISM SPECTRUM DISORDER [None]
  - BIRTH TRAUMA [None]
  - CAESAREAN SECTION [None]
  - CARDIAC DISORDER [None]
  - CARDIAC MURMUR [None]
  - CONVULSION [None]
  - DEAFNESS [None]
  - DEVELOPMENTAL DELAY [None]
  - DIARRHOEA HAEMORRHAGIC [None]
  - DRUG EXPOSURE DURING PREGNANCY [None]
  - DYSPEPSIA [None]
  - EYE DISORDER [None]
  - EYE MOVEMENT DISORDER [None]
  - FALL [None]
  - FEEDING DISORDER NEONATAL [None]
  - FOETAL DISTRESS SYNDROME [None]
  - GASTROINTESTINAL DISORDER [None]
  - HEMIPARESIS [None]
  - HYPOTHERMIA NEONATAL [None]
  - OBSESSIVE-COMPULSIVE DISORDER [None]
  - PREMATURE BABY [None]
  - RHINITIS ALLERGIC [None]
  - SENSORY INTEGRATIVE DYSFUNCTION [None]
  - SPEECH DISORDER DEVELOPMENTAL [None]
  - TIC [None]
  - VISUAL DISTURBANCE [None]
